FAERS Safety Report 14808963 (Version 1)
Quarter: 2018Q2

REPORT INFORMATION
  Report Type: Spontaneous
  Country: US (occurrence: US)
  Receive Date: 20180425
  Receipt Date: 20180425
  Transmission Date: 20180711
  Serious: Yes (Other)
  Sender: FDA-Public Use
  Company Number: US-ASTRAZENECA-2018SE50384

PATIENT

DRUGS (7)
  1. DEXILANT [Suspect]
     Active Substance: DEXLANSOPRAZOLE
     Route: 065
  2. NEXIUM [Suspect]
     Active Substance: ESOMEPRAZOLE MAGNESIUM
     Route: 048
  3. NEXIUM 24HR [Suspect]
     Active Substance: ESOMEPRAZOLE MAGNESIUM
     Route: 048
  4. PRILOSEC OTC [Suspect]
     Active Substance: OMEPRAZOLE MAGNESIUM
     Route: 048
  5. PRILOSEC [Suspect]
     Active Substance: OMEPRAZOLE MAGNESIUM
     Route: 048
  6. PROTONIX [Suspect]
     Active Substance: PANTOPRAZOLE SODIUM
     Route: 065
  7. PREVACID [Suspect]
     Active Substance: LANSOPRAZOLE
     Route: 065

REACTIONS (3)
  - Rebound effect [Unknown]
  - Hyperchlorhydria [Unknown]
  - Chronic kidney disease [Unknown]
